FAERS Safety Report 5611988-5 (Version None)
Quarter: 2008Q1

REPORT INFORMATION
  Report Type: 
  Country: None (occurrence: None)
  Receive Date: 20080204
  Receipt Date: 20080125
  Transmission Date: 20080703
  Serious: Yes (Hospitalization)
  Sender: FDA-Public Use
  Company Number: JP-AVENTIS-200810312JP

PATIENT
  Age: 52 Year
  Sex: Female
  Weight: 38.2 kg

DRUGS (4)
  1. LASIX [Suspect]
     Indication: OEDEMA
     Route: 048
  2. MAGNESIUM OXIDE [Concomitant]
     Indication: CONSTIPATION
     Route: 048
     Dates: start: 20070101
  3. GASTER D [Concomitant]
     Indication: GASTRITIS
     Route: 048
     Dates: start: 20070101
  4. SELBEX [Concomitant]
     Indication: GASTRITIS
     Route: 048
     Dates: start: 20070101

REACTIONS (2)
  - HYPOKALAEMIA [None]
  - PSEUDO-BARTTER SYNDROME [None]
